FAERS Safety Report 24328256 (Version 5)
Quarter: 2025Q2

REPORT INFORMATION
  Report Type: Report from Study
  Country: US (occurrence: US)
  Receive Date: 20240917
  Receipt Date: 20250618
  Transmission Date: 20250716
  Serious: No
  Sender: SUNOVION
  Company Number: US-SUMITOMO PHARMA SWITZERLAND GMBH-2024SPA002259

PATIENT

DRUGS (6)
  1. ORGOVYX [Suspect]
     Active Substance: RELUGOLIX
     Indication: Prostate cancer
     Dosage: 360 MG, SINGLE
     Route: 048
     Dates: start: 20240815, end: 20240815
  2. ORGOVYX [Suspect]
     Active Substance: RELUGOLIX
     Dosage: 120 MG, QD
     Route: 048
     Dates: start: 20240816
  3. RYBELSUS [Suspect]
     Active Substance: SEMAGLUTIDE
     Route: 065
  4. RYBELSUS [Suspect]
     Active Substance: SEMAGLUTIDE
     Route: 065
  5. ERLEADA [Suspect]
     Active Substance: APALUTAMIDE
     Indication: Prostate cancer
     Dosage: 240 MG, QD (4 AT NIGHT)
     Route: 065
     Dates: start: 20240815
  6. ERLEADA [Suspect]
     Active Substance: APALUTAMIDE
     Dosage: 120 MG, QD (2 AT NIGHT)
     Route: 065
     Dates: start: 20240815

REACTIONS (5)
  - Dry skin [Unknown]
  - Rash [Unknown]
  - Fatigue [Unknown]
  - Blood glucose increased [Unknown]
  - Hot flush [Unknown]
